FAERS Safety Report 18458528 (Version 1)
Quarter: 2020Q4

REPORT INFORMATION
  Report Type: Report from Study
  Country: US (occurrence: US)
  Receive Date: 20201103
  Receipt Date: 20201103
  Transmission Date: 20210114
  Serious: Yes (Hospitalization, Other)
  Sender: FDA-Public Use
  Company Number: US-SHIRE-US201814968

PATIENT
  Age: 58 Year
  Sex: Male
  Weight: 52.6 kg

DRUGS (12)
  1. TEDUGLUTIDE [Suspect]
     Active Substance: TEDUGLUTIDE
     Indication: SHORT-BOWEL SYNDROME
     Dosage: 2.4 MG, 1X/DAY:QD
     Route: 065
     Dates: start: 20140626, end: 20140901
  2. TEDUGLUTIDE [Suspect]
     Active Substance: TEDUGLUTIDE
     Indication: SHORT-BOWEL SYNDROME
     Dosage: 2.4 MG, 1X/DAY:QD
     Route: 065
     Dates: start: 20140626, end: 20140901
  3. ACETAMINOPHEN. [Concomitant]
     Active Substance: ACETAMINOPHEN
     Indication: ARTHRITIS BACTERIAL
     Dosage: 325 MILLIGRAM, PRN
     Route: 048
     Dates: start: 20180315, end: 20190220
  4. TEDUGLUTIDE [Suspect]
     Active Substance: TEDUGLUTIDE
     Indication: SHORT-BOWEL SYNDROME
     Dosage: 2.4 MG, 1X/DAY:QD
     Route: 065
     Dates: start: 20140626, end: 20140901
  5. ERAXIS [Concomitant]
     Active Substance: ANIDULAFUNGIN
     Indication: BACTERAEMIA
  6. NAFCILLIN [Concomitant]
     Active Substance: NAFCILLIN SODIUM
     Indication: SEPSIS
  7. PREDNISOLONE ACETATE. [Concomitant]
     Active Substance: PREDNISOLONE ACETATE
     Indication: CANDIDA ENDOPHTHALMITIS
     Dosage: 1 MILLILITER, QID
     Route: 047
  8. TEDUGLUTIDE [Suspect]
     Active Substance: TEDUGLUTIDE
     Indication: SHORT-BOWEL SYNDROME
     Dosage: 2.4 MG, 1X/DAY:QD
     Route: 065
     Dates: start: 20140626, end: 20140901
  9. DAPTOMYCIN. [Concomitant]
     Active Substance: DAPTOMYCIN
     Indication: BACTERAEMIA
  10. DAPTOMYCIN. [Concomitant]
     Active Substance: DAPTOMYCIN
     Indication: SEPSIS
  11. SANDOSTATIN LAR DEPOT [Concomitant]
     Active Substance: OCTREOTIDE ACETATE
     Indication: DIARRHOEA
     Dosage: 20 MILLIGRAM, EVERY 28 DAYS
     Route: 030
     Dates: start: 20180104
  12. MULTIVITAMINS [Concomitant]
     Active Substance: VITAMINS
     Indication: SHORT-BOWEL SYNDROME
     Dosage: 2 DOSAGE FORM, QD
     Route: 048

REACTIONS (2)
  - Septic arthritis staphylococcal [Recovered/Resolved with Sequelae]
  - Pyrexia [Recovered/Resolved with Sequelae]

NARRATIVE: CASE EVENT DATE: 20170907
